FAERS Safety Report 23600604 (Version 1)
Quarter: 2024Q1

REPORT INFORMATION
  Report Type: Spontaneous
  Country: US (occurrence: None)
  Receive Date: 20240305
  Receipt Date: 20240305
  Transmission Date: 20240410
  Serious: Yes (Life-Threatening, Hospitalization, Disabling)
  Sender: FDA-Public Use
  Company Number: None

PATIENT
  Age: 85 Year
  Sex: Male
  Weight: 81 kg

DRUGS (10)
  1. DAPTOMYCIN [Suspect]
     Active Substance: DAPTOMYCIN
     Indication: Staphylococcal bacteraemia
     Dosage: OTHER FREQUENCY : EVERY 48 HOURS;?
     Route: 041
     Dates: start: 20240229, end: 20240305
  2. Unasyn 3 g/100 mL NS IV Q12H [Concomitant]
     Dates: start: 20240221, end: 20240228
  3. Atorvastatin 20 mg PO QD [Concomitant]
     Dates: start: 20240221, end: 20240301
  4. Eliquis 2.5 mg PO BID [Concomitant]
     Dates: start: 20240226, end: 20240301
  5. Calcitriol 0.25 mcg PO QD [Concomitant]
     Dates: start: 20240221, end: 20240301
  6. Metoprolol succinate 150 mg PO QD` [Concomitant]
     Dates: start: 20240227, end: 20240301
  7. Montelukast 10 mg PO HS [Concomitant]
     Dates: start: 20240221, end: 20240301
  8. Oseltamivir 30 mg PO QD [Concomitant]
     Dates: start: 20240222, end: 20240226
  9. Oxybutynin 10 mg XL PO QD [Concomitant]
     Dates: start: 20240221, end: 20240301
  10. Vancomycin (1,000 and 1,250 mg) [Concomitant]
     Dates: start: 20240221, end: 20240228

REACTIONS (1)
  - Stevens-Johnson syndrome [None]

NARRATIVE: CASE EVENT DATE: 20240305
